FAERS Safety Report 8107219-7 (Version None)
Quarter: 2012Q1

REPORT INFORMATION
  Report Type: 
  Country: None (occurrence: None)
  Receive Date: 20120202
  Receipt Date: 20120120
  Transmission Date: 20120608
  Serious: Yes (Hospitalization, Other)
  Sender: FDA-Public Use
  Company Number: US-ELI_LILLY_AND_COMPANY-US201103005045

PATIENT
  Sex: Female
  Weight: 76 kg

DRUGS (11)
  1. PREMARIN [Concomitant]
     Dosage: UNK UNK, 3/W
  2. LIPITOR [Concomitant]
     Dosage: 40 MG, QD
     Route: 065
  3. TIMOLOL MALEATE [Concomitant]
     Route: 065
  4. OMEPRAZOLE [Concomitant]
     Dosage: UNK, QD
     Route: 065
  5. CALCIUM WITH VITAMIN D [Concomitant]
     Dosage: UNK, BID
     Route: 065
  6. FORTEO [Suspect]
     Indication: OSTEOPOROSIS
     Dosage: 20 UG, DAILY (1/D)
     Route: 058
     Dates: start: 20100423
  7. MULTI-VITAMIN [Concomitant]
     Dosage: UNK, UNKNOWN
     Route: 065
  8. CALCIUM [Concomitant]
     Dosage: UNK, UNKNOWN
     Route: 065
  9. ASPIRIN [Concomitant]
     Dosage: 81 MG, QD
     Route: 065
  10. FORTEO [Suspect]
     Dosage: 20 UG, QD
     Route: 058
  11. XALATAN [Concomitant]
     Route: 065

REACTIONS (4)
  - FALL [None]
  - UPPER LIMB FRACTURE [None]
  - PATELLA FRACTURE [None]
  - DIZZINESS [None]
